FAERS Safety Report 4954025-8 (Version None)
Quarter: 2006Q1

REPORT INFORMATION
  Report Type: 
  Country: None (occurrence: None)
  Receive Date: 20060321
  Receipt Date: 20060306
  Transmission Date: 20060701
  Serious: Yes (Death)
  Sender: FDA-Public Use
  Company Number: 2006S1001959

PATIENT
  Age: 63 Year
  Sex: Male

DRUGS (5)
  1. CLOZAPINE [Suspect]
     Indication: HALLUCINATION
     Dosage: 62.5 MG; HS; ORAL
     Route: 048
     Dates: end: 20060301
  2. LORAZEPAM [Concomitant]
  3. GALANTAMINE HYDROBROMIDE [Concomitant]
  4. CARBIDOPA AND LEVODOPA [Concomitant]
  5. ENTACAPONE [Concomitant]

REACTIONS (2)
  - GENERAL PHYSICAL HEALTH DETERIORATION [None]
  - INFECTION [None]
